FAERS Safety Report 8234817-2 (Version None)
Quarter: 2012Q1

REPORT INFORMATION
  Report Type: 
  Country: None (occurrence: None)
  Receive Date: 20120326
  Receipt Date: 20120313
  Transmission Date: 20120608
  Serious: Yes (Hospitalization)
  Sender: FDA-Public Use
  Company Number: GB-ROCHE-1032599

PATIENT
  Sex: Female

DRUGS (8)
  1. DOCUSATE [Concomitant]
     Route: 065
  2. HERCEPTIN [Suspect]
     Route: 042
     Dates: start: 20120106
  3. OMEPRAZOLE [Concomitant]
     Route: 065
  4. HERCEPTIN [Suspect]
     Indication: BREAST CANCER METASTATIC
     Route: 042
     Dates: start: 20111102
  5. PACLITAXEL [Suspect]
     Route: 042
     Dates: start: 20120106
  6. TEMAZEPAM [Concomitant]
     Route: 065
  7. PACLITAXEL [Suspect]
     Indication: BREAST CANCER METASTATIC
     Route: 042
     Dates: start: 20111102
  8. MIRTAZAPINE [Concomitant]
     Route: 065

REACTIONS (2)
  - PYREXIA [None]
  - CHEST PAIN [None]
